FAERS Safety Report 14941039 (Version 1)
Quarter: 2018Q2

REPORT INFORMATION
  Report Type: Spontaneous
  Country: US (occurrence: US)
  Receive Date: 20180525
  Receipt Date: 20180525
  Transmission Date: 20180711
  Serious: Yes (Other)
  Sender: FDA-Public Use
  Company Number: US-009507513-1805USA006159

PATIENT
  Age: 55 Year
  Sex: Female

DRUGS (4)
  1. TEMODAR [Suspect]
     Active Substance: TEMOZOLOMIDE
     Indication: ADJUVANT THERAPY
     Dosage: UNK
     Dates: start: 20030428, end: 20050715
  2. TEMODAR [Suspect]
     Active Substance: TEMOZOLOMIDE
     Indication: GLIOBLASTOMA
     Dosage: UNK
     Dates: start: 20030207, end: 20030331
  3. DABRAFENIB [Suspect]
     Active Substance: DABRAFENIB
     Indication: ASTROCYTOMA
     Dosage: 150 MG/DAY MONTHLY TREATMENT
  4. TRAMETINIB [Suspect]
     Active Substance: TRAMETINIB
     Indication: ASTROCYTOMA
     Dosage: 2 MG,DAY MONTHLY TREATMENT

REACTIONS (1)
  - BRAF V600E mutation positive [Unknown]

NARRATIVE: CASE EVENT DATE: 201805
